FAERS Safety Report 4305224-X (Version None)
Quarter: 2004Q1

REPORT INFORMATION
  Report Type: 
  Country: None (occurrence: None)
  Receive Date: 20040226
  Receipt Date: 20040220
  Transmission Date: 20041129
  Serious: Yes (Death, Life-Threatening, Hospitalization, Other)
  Sender: FDA-Public Use
  Company Number: WAES 0402DEU00146

PATIENT
  Age: 26 Year
  Sex: Female
  Weight: 90 kg

DRUGS (8)
  1. DIPYRONE [Suspect]
     Indication: BACK PAIN
     Route: 048
     Dates: start: 20031101, end: 20031101
  2. DIPYRONE [Suspect]
     Indication: CHEST PAIN
     Route: 048
     Dates: start: 20031101, end: 20031101
  3. IBUPROFEN [Suspect]
     Indication: BACK PAIN
     Dates: start: 20031101, end: 20031101
  4. IBUPROFEN [Suspect]
     Indication: CHEST PAIN
     Dates: start: 20031101, end: 20031101
  5. MEPHENESIN [Suspect]
     Indication: BACK PAIN
     Route: 048
     Dates: start: 20031101, end: 20031101
  6. MEPHENESIN [Suspect]
     Indication: CHEST PAIN
     Route: 048
     Dates: start: 20031101, end: 20031101
  7. VIOXX [Suspect]
     Indication: BACK PAIN
     Route: 048
     Dates: start: 20031101, end: 20031101
  8. VIOXX [Suspect]
     Indication: CHEST PAIN
     Route: 048
     Dates: start: 20031101, end: 20031101

REACTIONS (6)
  - DRUG INEFFECTIVE [None]
  - HEPATIC FAILURE [None]
  - PERICARDIAL EFFUSION [None]
  - PLEURAL EFFUSION [None]
  - PLEURISY [None]
  - RENAL FAILURE [None]
